FAERS Safety Report 6427060-0 (Version None)
Quarter: 2009Q4

REPORT INFORMATION
  Report Type: 
  Country: None (occurrence: None)
  Receive Date: 20091104
  Receipt Date: 20091029
  Transmission Date: 20100525
  Serious: Yes (Hospitalization)
  Sender: FDA-Public Use
  Company Number: US-ASTRAZENECA-2009SE23253

PATIENT
  Age: 85 Year
  Sex: Female

DRUGS (10)
  1. SYMBICORT [Suspect]
     Indication: CHRONIC OBSTRUCTIVE PULMONARY DISEASE
     Dosage: 160/4.5, TWO PUFFS
     Route: 055
     Dates: start: 20080101
  2. ATACAND [Suspect]
     Indication: BLOOD PRESSURE
     Route: 048
  3. LEVETIRACETAM [Concomitant]
  4. ZOLPIDEM [Concomitant]
  5. REQUIP [Concomitant]
  6. FUROSEMIDE [Concomitant]
  7. ASPIRIN [Concomitant]
  8. LOVASTATIN [Concomitant]
  9. ZANTAC [Concomitant]
  10. PREDNISONE TAB [Concomitant]
     Dosage: 10 MG TO 1 MG

REACTIONS (4)
  - BONE PAIN [None]
  - CARDIAC FAILURE CONGESTIVE [None]
  - OEDEMA PERIPHERAL [None]
  - SYNCOPE [None]
